FAERS Safety Report 22826928 (Version 3)
Quarter: 2024Q2

REPORT INFORMATION
  Report Type: Spontaneous
  Country: JP (occurrence: JP)
  Receive Date: 20230816
  Receipt Date: 20240405
  Transmission Date: 20240716
  Serious: Yes (Hospitalization)
  Sender: FDA-Public Use
  Company Number: JP-Merck Healthcare KGaA-2023467022

PATIENT
  Age: 82 Year
  Sex: Female
  Weight: 31 kg

DRUGS (10)
  1. METGLUCO [Suspect]
     Active Substance: METFORMIN HYDROCHLORIDE
     Indication: Diabetes mellitus
     Route: 048
     Dates: start: 20200710
  2. METGLUCO [Suspect]
     Active Substance: METFORMIN HYDROCHLORIDE
     Route: 048
  3. VILDAGLIPTIN [Suspect]
     Active Substance: VILDAGLIPTIN
     Indication: Diabetes mellitus
     Route: 048
     Dates: start: 201704, end: 20220222
  4. MIGLITOL [Concomitant]
     Active Substance: MIGLITOL
     Indication: Product used for unknown indication
     Dates: start: 201704
  5. MITIGLINIDE [Concomitant]
     Active Substance: MITIGLINIDE
     Indication: Product used for unknown indication
  6. TOFOGLIFLOZIN [Concomitant]
     Active Substance: TOFOGLIFLOZIN
     Indication: Product used for unknown indication
     Dates: start: 20190622
  7. TRULICITY [Concomitant]
     Active Substance: DULAGLUTIDE
     Indication: Product used for unknown indication
     Route: 058
     Dates: start: 20220221
  8. LANSOPRAZOLE [Concomitant]
     Active Substance: LANSOPRAZOLE
     Indication: Gastric ulcer
     Route: 048
     Dates: start: 20220319
  9. RIVASTIGMINE [Concomitant]
     Active Substance: RIVASTIGMINE
     Indication: Product used for unknown indication
     Dates: start: 20221007, end: 20221103
  10. RIVASTIGMINE [Concomitant]
     Active Substance: RIVASTIGMINE
     Dates: start: 20221104

REACTIONS (12)
  - Pemphigoid [Recovered/Resolved]
  - Haematocrit increased [Recovered/Resolved]
  - Haemoglobin increased [Recovered/Resolved]
  - Red blood cell count increased [Recovered/Resolved]
  - Lymphocyte percentage decreased [Unknown]
  - Platelet count increased [Recovered/Resolved]
  - Eosinophil percentage decreased [Unknown]
  - Monocyte percentage increased [Recovered/Resolved]
  - Neutrophil percentage increased [Unknown]
  - White blood cell count increased [Recovered/Resolved]
  - C-reactive protein increased [Recovered/Resolved]
  - Glycosylated haemoglobin increased [Recovered/Resolved]

NARRATIVE: CASE EVENT DATE: 20210101
